FAERS Safety Report 21335779 (Version 1)
Quarter: 2022Q3

REPORT INFORMATION
  Report Type: Report from Study
  Country: CA (occurrence: CA)
  Receive Date: 20220915
  Receipt Date: 20220915
  Transmission Date: 20221027
  Serious: Yes (Other)
  Sender: FDA-Public Use
  Company Number: CA-NOVARTISPH-PHHY2015CA056461

PATIENT
  Sex: Female

DRUGS (1)
  1. GILENYA [Suspect]
     Active Substance: FINGOLIMOD HYDROCHLORIDE
     Indication: Relapsing-remitting multiple sclerosis
     Dosage: UNK
     Route: 048
     Dates: start: 20150504

REACTIONS (6)
  - Expanded disability status scale score increased [Unknown]
  - Hot flush [Unknown]
  - Dizziness [Unknown]
  - Headache [Unknown]
  - Lymphopenia [Unknown]
  - Off label use [Unknown]
